FAERS Safety Report 8491047-7 (Version None)
Quarter: 2012Q3

REPORT INFORMATION
  Report Type: 
  Country: None (occurrence: None)
  Receive Date: 20120706
  Receipt Date: 20120628
  Transmission Date: 20120928
  Serious: Yes (Hospitalization)
  Sender: FDA-Public Use
  Company Number: US-BAYER-2012-032789

PATIENT
  Age: 44 Year
  Sex: Female

DRUGS (10)
  1. METOPROLOL SUCCINATE [Concomitant]
     Dosage: 25 MG, BID
     Dates: start: 20110330, end: 20110624
  2. YASMIN [Suspect]
     Dosage: UNK
     Dates: end: 20110716
  3. FLEXERIL [Concomitant]
     Indication: MUSCLE STRAIN
     Dosage: 10 MG, UNK
     Route: 048
     Dates: start: 20111128
  4. HYDROCODONE BITARTRATE + ACETAMINOPHEN [Concomitant]
     Indication: PAIN
     Dosage: 5-500 MG 1-2 TABLETS 4-6 HOURS AS NEEDED
     Dates: start: 20110330, end: 20110824
  5. DEXAMETHASONE [Concomitant]
     Indication: MIGRAINE
     Dosage: 4 MG, PRN
     Dates: start: 20110330, end: 20111209
  6. TRAMADOL HYDROCHLORIDE [Concomitant]
     Indication: PAIN
     Dosage: 50 MG, 1-2TABLETS 4-6HOURS AS NEEDED
     Route: 048
     Dates: start: 20110330
  7. ONDANSETRON [Concomitant]
     Dosage: UNK, EVERY 6 HOURS
     Route: 048
     Dates: start: 20110428, end: 20110824
  8. VERAPAMIL [Concomitant]
     Dosage: UNK UNK, TID
     Route: 048
     Dates: start: 20110418
  9. SIMVASTATIN [Concomitant]
     Dosage: 1 TABLET EVERY NIGHT
     Route: 048
  10. YAZ [Suspect]
     Dosage: UNK
     Dates: end: 20110716

REACTIONS (3)
  - DEEP VEIN THROMBOSIS [None]
  - INJURY [None]
  - PULMONARY EMBOLISM [None]
